FAERS Safety Report 15994835 (Version 1)
Quarter: 2019Q1

REPORT INFORMATION
  Report Type: Spontaneous
  Country: NL (occurrence: NL)
  Receive Date: 20190222
  Receipt Date: 20190222
  Transmission Date: 20190418
  Serious: Yes (Life-Threatening, Other)
  Sender: FDA-Public Use
  Company Number: NL-ACCORD-108838

PATIENT
  Age: 72 Year
  Sex: Female

DRUGS (11)
  1. VENTOLIN DISKUS INHPDR [Concomitant]
     Dosage: MAXIMAAL 4X PER DAG 1 INHALATIE, AS NECESSARY?200MCG 60DO
     Route: 055
     Dates: start: 20130822
  2. PERINDOPRIL/PERINDOPRIL ERBUMINE [Concomitant]
     Dosage: 1DD1?STRENGTH: 4 MG
     Route: 048
     Dates: start: 20060424
  3. CALCI CHEW D3 [Concomitant]
     Active Substance: CALCIUM CARBONATE\CHOLECALCIFEROL
     Dosage: IN THE EVENING, 1 TABLET?500MG/400IE
     Route: 048
     Dates: start: 20090416
  4. FOSTER [Concomitant]
     Active Substance: BECLOMETHASONE\FORMOTEROL
     Dosage: 2DD 1 INHALATIE?AEROSOL 100/6MCG/DOSE AEROSOL 120 DOSE
     Route: 055
     Dates: start: 20130704
  5. SPIRIVA [Concomitant]
     Active Substance: TIOTROPIUM BROMIDE MONOHYDRATE
     Dosage: 1DD 1 INHALATIE?STRENGTH: 18 MG
     Route: 055
  6. PANTOPRAZOLE [Concomitant]
     Active Substance: PANTOPRAZOLE
     Dosage: 1DD1?STRENGTH: 40 MG
     Route: 048
     Dates: start: 20070927
  7. GLYCERYL TRINITRATE [Concomitant]
     Active Substance: NITROGLYCERIN
     Dosage: WHEN NEEDED, AS NECESSARY?0.4 MG/DO
     Route: 060
     Dates: start: 20110510
  8. SIMVASTATIN. [Concomitant]
     Active Substance: SIMVASTATIN
     Dosage: FOR THE NIGHT 1 TABLET?STRENGTH: 40 MG
     Route: 048
     Dates: start: 20070927
  9. MONTELUKAST [Suspect]
     Active Substance: MONTELUKAST SODIUM
     Indication: ASTHMA
     Dosage: STRENGTH: 10 MG?1 TIME PER DAY 1 PIECE(S)
     Route: 048
     Dates: start: 20140413, end: 20140713
  10. CARBASALAATCALCIUM [Concomitant]
     Active Substance: CARBASPIRIN CALCIUM
     Dosage: 1DD1?STRENGTH: 100 MG
     Route: 048
     Dates: start: 20051206
  11. LOSARTAN. [Concomitant]
     Active Substance: LOSARTAN
     Dosage: 1DD1?STRENGTH: 50 MG
     Route: 048
     Dates: start: 20130405

REACTIONS (2)
  - Nightmare [Recovered/Resolved]
  - Somnambulism [Recovered/Resolved]

NARRATIVE: CASE EVENT DATE: 20140413
